FAERS Safety Report 7486108-5 (Version None)
Quarter: 2011Q2

REPORT INFORMATION
  Report Type: 
  Country: None (occurrence: None)
  Receive Date: 20110517
  Receipt Date: 20110509
  Transmission Date: 20111010
  Serious: Yes (Death, Other)
  Sender: FDA-Public Use
  Company Number: NL-GENZYME-200821136GPV

PATIENT
  Age: 41 Year
  Sex: Male

DRUGS (49)
  1. DOXORUBICIN HCL [Suspect]
     Dosage: 50 MG/M2, DAY 1, CYCLE 6
     Route: 042
  2. VINCRISTINE [Suspect]
     Dosage: 1.4 MG/M2, ONCE, CYCLE 7
     Route: 042
  3. FLUCONAZOLE [Concomitant]
     Indication: ANTIFUNGAL PROPHYLAXIS
     Dosage: QD, 100-150 MG
     Route: 065
  4. CAMPATH [Suspect]
     Dosage: 30 MG, DAY 1, 5, 10
     Route: 058
     Dates: end: 20061001
  5. CAMPATH [Suspect]
     Dosage: 30 MG, DAY 1, 5, 10
     Route: 058
  6. CYCLOPHOSPHAMIDE [Suspect]
     Indication: PERIPHERAL T-CELL LYMPHOMA UNSPECIFIED
     Dosage: 750 MG/M2 DAY 1, CYCLE 1
     Route: 042
  7. CYCLOPHOSPHAMIDE [Suspect]
     Dosage: 750 MG/M2 DAY 1, CYCLE 6
     Route: 042
  8. CYCLOPHOSPHAMIDE [Suspect]
     Dosage: 750 MG/M2 DAY 1, CYCLE 8
     Route: 042
     Dates: end: 20061001
  9. PREDNISONE TAB [Suspect]
     Dosage: 100 MG, QD ON DAYS 1-5, CYCLE 5
     Route: 048
  10. CAMPATH [Suspect]
     Dosage: 30 MG, DAY 1, 5, 10
     Route: 058
  11. CAMPATH [Suspect]
     Dosage: 30 MG, DAY 1, 5, 10
     Route: 058
  12. VINCRISTINE [Suspect]
     Dosage: 1.4 MG/M2, ONCE, CYCLE 4
     Route: 042
  13. VINCRISTINE [Suspect]
     Dosage: 1.4 MG/M2, ONCE, CYCLE 5
     Route: 042
  14. PREDNISONE TAB [Suspect]
     Dosage: 100 MG, QD ON DAYS 1-5, CYCLE 4
     Route: 048
  15. CAMPATH [Suspect]
     Dosage: 30 MG, DAY 10, CYCLE 1
     Route: 058
  16. CAMPATH [Suspect]
     Dosage: 30 MG, DAY 1, 5, 10
     Route: 058
  17. DOXORUBICIN HCL [Suspect]
     Dosage: 50 MG/M2, DAY 1, CYCLE 2
     Route: 042
  18. DOXORUBICIN HCL [Suspect]
     Dosage: 50 MG/M2, DAY 1, CYCLE 3
     Route: 042
  19. VINCRISTINE [Suspect]
     Dosage: 1.4 MG/M2, ONCE, CYCLE 3
     Route: 042
  20. CAMPATH [Suspect]
     Dosage: 30 MG, DAY 1, 5, 10
     Route: 058
     Dates: end: 20061001
  21. CYCLOPHOSPHAMIDE [Suspect]
     Dosage: 750 MG/M2 DAY 1, CYCLE 3
     Route: 042
  22. DOXORUBICIN HCL [Suspect]
     Indication: PERIPHERAL T-CELL LYMPHOMA UNSPECIFIED
     Dosage: 50 MG/M2, DAY 1, CYCLE 1
     Route: 042
  23. DOXORUBICIN HCL [Suspect]
     Dosage: 50 MG/M2,  DAY 1,CYCLE 7
     Route: 042
  24. VINCRISTINE [Suspect]
     Dosage: 1.4 MG/M2, ONCE, CYCLE 2
     Route: 042
  25. VINCRISTINE [Suspect]
     Dosage: 1.4 MG/M2, ONCE, CYCLE 6
     Route: 042
  26. PREDNISONE TAB [Suspect]
     Dosage: 100 MG, QD ON DAYS 1-5, CYCLE 2
     Route: 048
  27. ACETAMINOPHEN [Concomitant]
     Indication: PREMEDICATION
     Dosage: 1000 MG, UNK
     Route: 065
  28. CYCLOPHOSPHAMIDE [Suspect]
     Dosage: 750 MG/M2 DAY 1, CYCLE 2
     Route: 042
  29. CYCLOPHOSPHAMIDE [Suspect]
     Dosage: 750 MG/M2 DAY 1, CYCLE 7
     Route: 042
  30. DOXORUBICIN HCL [Suspect]
     Dosage: 50 MG/M2, DAY 1,CYCLE 4
     Route: 042
  31. DOXORUBICIN HCL [Suspect]
     Dosage: 50 MG/M2, DAY 1, CYCLE 8
     Route: 042
     Dates: end: 20061001
  32. PREDNISONE TAB [Suspect]
     Indication: PERIPHERAL T-CELL LYMPHOMA UNSPECIFIED
     Dosage: 100 MG, QD ON DAYS 1-5, CYCLE 1
     Route: 048
  33. PREDNISONE TAB [Suspect]
     Dosage: 100 MG, QD ON DAYS 1-5, CYCLE 3
     Route: 048
  34. PREDNISONE TAB [Suspect]
     Dosage: 100 MG, QD ON DAYS 1-5, CYCLE 7
     Route: 048
  35. COTRIM [Concomitant]
     Indication: INFECTION PROPHYLAXIS
     Dosage: 480 MG, BID, 3X/W
     Route: 065
  36. VALACICLOVIR [Concomitant]
     Indication: ANTIVIRAL PROPHYLAXIS
     Dosage: 500 MG, BID
     Route: 065
  37. PEGFILGRASTIM [Concomitant]
     Indication: PRODUCT USED FOR UNKNOWN INDICATION
     Dosage: 6 MG, QS
     Route: 058
  38. ANTIHISTAMINES [Concomitant]
     Indication: ANTIALLERGIC THERAPY
     Dosage: UNK MG, UNK
     Route: 065
  39. CAMPATH [Suspect]
     Dosage: 30 MG, DAY 1, 5, 10
     Route: 058
  40. CYCLOPHOSPHAMIDE [Suspect]
     Dosage: 750 MG/M2 DAY 1, CYCLE 4
     Route: 042
  41. CYCLOPHOSPHAMIDE [Suspect]
     Dosage: 750 MG/M2 DAY 1, CYCLE 5
     Route: 042
  42. DOXORUBICIN HCL [Suspect]
     Dosage: 50 MG/M2, DAY 1,CYCLE 5
     Route: 042
  43. VINCRISTINE [Suspect]
     Indication: PERIPHERAL T-CELL LYMPHOMA UNSPECIFIED
     Dosage: 1.4 MG/M2, ONCE CYCLE 1
     Route: 042
  44. CAMPATH [Suspect]
     Indication: PERIPHERAL T-CELL LYMPHOMA UNSPECIFIED
     Dosage: 3 MG, DAY 1, CYCLE 1
     Route: 058
  45. CAMPATH [Suspect]
     Dosage: 10 MG, DAY 5, CYCLE 1
     Route: 058
  46. VINCRISTINE [Suspect]
     Dosage: 1.4 MG/M2, ONCE, CYCLE 8
     Route: 042
     Dates: end: 20061001
  47. PREDNISONE TAB [Suspect]
     Dosage: 100 MG, QD ON DAYS 1-5, CYCLE 6
     Route: 048
  48. PREDNISONE TAB [Suspect]
     Dosage: 100 MG, QD ON DAYS 1-5, CYCLE 8
     Route: 048
  49. ALLOPURINOL [Concomitant]
     Indication: PROPHYLAXIS
     Dosage: 300 MG, UNK
     Route: 065

REACTIONS (6)
  - EPSTEIN-BARR VIRUS INFECTION [None]
  - CYTOMEGALOVIRUS INFECTION [None]
  - T-CELL LYMPHOMA [None]
  - FEBRILE NEUTROPENIA [None]
  - HISTIOCYTOSIS HAEMATOPHAGIC [None]
  - LYMPHOPROLIFERATIVE DISORDER [None]
